FAERS Safety Report 24103983 (Version 5)
Quarter: 2025Q2

REPORT INFORMATION
  Report Type: Report from Study
  Country: US (occurrence: US)
  Receive Date: 20240717
  Receipt Date: 20250609
  Transmission Date: 20250717
  Serious: Yes (Other)
  Sender: TAKEDA
  Company Number: US-TAKEDA-2024TUS071539

PATIENT
  Sex: Female

DRUGS (12)
  1. PONATINIB [Suspect]
     Active Substance: PONATINIB
     Indication: Acute lymphocytic leukaemia
     Dosage: 30 MILLIGRAM, QD
  2. PONATINIB [Suspect]
     Active Substance: PONATINIB
     Indication: Acute lymphocytic leukaemia recurrent
     Dosage: 30 MILLIGRAM, QD
  3. PONATINIB [Suspect]
     Active Substance: PONATINIB
     Dosage: 30 MILLIGRAM, QD
     Dates: start: 20250129
  4. PONATINIB [Suspect]
     Active Substance: PONATINIB
     Dosage: 30 MILLIGRAM, QD
     Dates: start: 20250129
  5. VITAMIN D [Concomitant]
     Active Substance: VITAMIN D NOS
  6. GRANISETRON HYDROCHLORIDE [Concomitant]
     Active Substance: GRANISETRON HYDROCHLORIDE
  7. SPRYCEL [Concomitant]
     Active Substance: DASATINIB
  8. METOPROLOL TARTRATE [Concomitant]
     Active Substance: METOPROLOL TARTRATE
  9. DELSYM [Concomitant]
     Active Substance: DEXTROMETHORPHAN
  10. URSODIOL [Concomitant]
     Active Substance: URSODIOL
  11. VALACYCLOVIR HYDROCHLORIDE [Concomitant]
     Active Substance: VALACYCLOVIR HYDROCHLORIDE
  12. SCEMBLIX [Concomitant]
     Active Substance: ASCIMINIB HYDROCHLORIDE

REACTIONS (3)
  - Acute lymphocytic leukaemia recurrent [Unknown]
  - Off label use [Unknown]
  - Visual impairment [Unknown]
